FAERS Safety Report 7133327-3 (Version None)
Quarter: 2010Q4

REPORT INFORMATION
  Report Type: 
  Country: None (occurrence: None)
  Receive Date: 20101202
  Receipt Date: 20101126
  Transmission Date: 20110411
  Serious: Yes (Hospitalization, Other)
  Sender: FDA-Public Use
  Company Number: FR-PFIZER INC-2010158229

PATIENT
  Age: 47 Year
  Sex: Male

DRUGS (5)
  1. XANAX [Suspect]
     Indication: DEPRESSION
     Dosage: UNK
     Route: 048
     Dates: start: 20101010, end: 20101010
  2. LEXOMIL [Suspect]
     Dosage: 180 MG, 1X/DAY
     Route: 048
     Dates: start: 20101010, end: 20101010
  3. ZOLPIDEM [Suspect]
     Indication: DEPRESSION
     Dosage: UNK
     Route: 048
     Dates: start: 20101010, end: 20101010
  4. STABLON [Concomitant]
     Indication: DEPRESSION
  5. ZOLOFT [Concomitant]
     Indication: DEPRESSION

REACTIONS (3)
  - COMA [None]
  - PNEUMONIA ASPIRATION [None]
  - RHABDOMYOLYSIS [None]
